FAERS Safety Report 15756392 (Version 1)
Quarter: 2018Q4

REPORT INFORMATION
  Report Type: Spontaneous
  Country: PT (occurrence: PT)
  Receive Date: 20181224
  Receipt Date: 20181224
  Transmission Date: 20190205
  Serious: Yes (Death, Life-Threatening, Hospitalization, Other)
  Sender: FDA-Public Use
  Company Number: PT-BRISTOL-MYERS SQUIBB COMPANY-BMS-2018-116651

PATIENT
  Age: 64 Year
  Sex: Female

DRUGS (1)
  1. WARFARIN SODIUM. [Suspect]
     Active Substance: WARFARIN SODIUM
     Indication: AORTIC VALVE REPLACEMENT
     Dosage: UNK
     Route: 065

REACTIONS (5)
  - Cardiac arrest [Unknown]
  - Anaemia [Unknown]
  - Myocardial infarction [Unknown]
  - Hyperlactacidaemia [Unknown]
  - Brain hypoxia [Fatal]
